FAERS Safety Report 7004249-3 (Version None)
Quarter: 2010Q3

REPORT INFORMATION
  Report Type: 
  Country: None (occurrence: None)
  Receive Date: 20100920
  Receipt Date: 20100219
  Transmission Date: 20110219
  Serious: Yes (Other)
  Sender: FDA-Public Use
  Company Number: US-WYE-H13803010

PATIENT
  Sex: Male

DRUGS (1)
  1. TORISEL [Suspect]
     Dosage: UNKNOWN

REACTIONS (3)
  - ACNE [None]
  - ASTHENIA [None]
  - RASH [None]
